FAERS Safety Report 5486794-5 (Version None)
Quarter: 2007Q4

REPORT INFORMATION
  Report Type: 
  Country: None (occurrence: None)
  Receive Date: 20071012
  Receipt Date: 20071012
  Transmission Date: 20080405
  Serious: Yes (Hospitalization)
  Sender: FDA-Public Use
  Company Number: None

PATIENT
  Sex: Female
  Weight: 55.7924 kg

DRUGS (2)
  1. VISUDYNE [Suspect]
  2. AVASTIN [Suspect]

REACTIONS (1)
  - OEDEMA PERIPHERAL [None]
